FAERS Safety Report 16333399 (Version 1)
Quarter: 2019Q2

REPORT INFORMATION
  Report Type: Spontaneous
  Country: US (occurrence: US)
  Receive Date: 20190520
  Receipt Date: 20190520
  Transmission Date: 20190711
  Serious: No
  Sender: FDA-Public Use
  Company Number: US-VANDA PHARMACEUTICALS, INC-2018ILOUS001719

PATIENT
  Sex: Female

DRUGS (6)
  1. FANAPT [Suspect]
     Active Substance: ILOPERIDONE
     Indication: PSYCHOTIC DISORDER
  2. FANAPT [Suspect]
     Active Substance: ILOPERIDONE
     Indication: SCHIZOPHRENIA
     Dosage: 4 MG, OR 6 MG QD
     Route: 048
     Dates: start: 2016
  3. FANAPT [Suspect]
     Active Substance: ILOPERIDONE
     Indication: BIPOLAR DISORDER
  4. BUSPAR [Concomitant]
     Active Substance: BUSPIRONE HYDROCHLORIDE
     Indication: PRODUCT USED FOR UNKNOWN INDICATION
     Dosage: 30 MG, BID
  5. FANAPT [Suspect]
     Active Substance: ILOPERIDONE
     Indication: BORDERLINE PERSONALITY DISORDER
  6. LAMICTAL [Concomitant]
     Active Substance: LAMOTRIGINE
     Indication: PRODUCT USED FOR UNKNOWN INDICATION
     Dosage: 200 MG, UNK

REACTIONS (1)
  - Exposure during pregnancy [Unknown]
